FAERS Safety Report 13291097 (Version 2)
Quarter: 2017Q2

REPORT INFORMATION
  Report Type: Report from Study
  Country: US (occurrence: IE)
  Receive Date: 20170302
  Receipt Date: 20170606
  Transmission Date: 20170830
  Serious: Yes (Other)
  Sender: FDA-Public Use
  Company Number: US-SUNOVION-2017SUN000892

PATIENT

DRUGS (18)
  1. INDACATEROL AND GLYCOPYRROLATE [Suspect]
     Active Substance: GLYCOPYRROLATE\INDACATEROL MALEATE
     Indication: CHRONIC OBSTRUCTIVE PULMONARY DISEASE
     Dosage: 1 DF (85/43 UG), UNK
     Route: 055
     Dates: start: 20150706
  2. EZETROL [Concomitant]
     Active Substance: EZETIMIBE
     Dosage: UNK
     Dates: start: 20100406
  3. NASACORT [Concomitant]
     Active Substance: TRIAMCINOLONE ACETONIDE
     Dosage: UNK
     Dates: start: 20061102
  4. RAMIPRIL. [Concomitant]
     Active Substance: RAMIPRIL
     Dosage: UNK
  5. ZOPITAN [Concomitant]
     Dosage: UNK
     Dates: start: 20100103
  6. COMBODART [Concomitant]
     Active Substance: DUTASTERIDE\TAMSULOSIN
     Dosage: UNK (500/400 UG)
     Dates: start: 20150327
  7. QUININE [Concomitant]
     Active Substance: QUININE
     Dosage: UNK
     Dates: start: 20110207
  8. MELFEN [Concomitant]
     Dosage: UNK
     Dates: start: 20160205
  9. CRESTOR [Concomitant]
     Active Substance: ROSUVASTATIN CALCIUM
     Dosage: UNK
     Dates: start: 20090619
  10. HYLO-FORTE [Concomitant]
     Active Substance: HYALURONATE SODIUM
     Dosage: UNK (0.2 %)
     Dates: start: 20160310
  11. FLIXOTIDE [Concomitant]
     Active Substance: FLUTICASONE PROPIONATE
     Dosage: UNK
     Dates: start: 20160629
  12. XANAX [Concomitant]
     Active Substance: ALPRAZOLAM
     Dosage: UNK
  13. ZOTON [Concomitant]
     Active Substance: LANSOPRAZOLE
     Dosage: UNK
  14. VIAGRA [Concomitant]
     Active Substance: SILDENAFIL CITRATE
     Dosage: UNK
  15. SEROQUEL [Concomitant]
     Active Substance: QUETIAPINE FUMARATE
     Dosage: UNK
     Dates: start: 20100315
  16. NU-SEALS [Concomitant]
     Dosage: UNK
  17. TRYPTIZOL [Concomitant]
     Active Substance: AMITRIPTYLINE HYDROCHLORIDE
     Dosage: UNK
     Dates: start: 20141222
  18. TRITACE [Concomitant]
     Active Substance: RAMIPRIL
     Dosage: UNK
     Dates: start: 20160205

REACTIONS (10)
  - Conjunctivitis [Unknown]
  - Malaise [Unknown]
  - Cough [Unknown]
  - Dysphonia [Unknown]
  - Dyspnoea [Unknown]
  - Respiratory disorder [Unknown]
  - Abdominal pain lower [Unknown]
  - Respiratory tract infection [Unknown]
  - Productive cough [Unknown]
  - Chest pain [Unknown]

NARRATIVE: CASE EVENT DATE: 20160727
